FAERS Safety Report 10853999 (Version 2)
Quarter: 2015Q2

REPORT INFORMATION
  Report Type: Spontaneous
  Country: US (occurrence: US)
  Receive Date: 20150223
  Receipt Date: 20150507
  Transmission Date: 20150821
  Serious: Yes (Hospitalization)
  Sender: FDA-Public Use
  Company Number: US-AUROBINDO-AUR-APL-2015-01439

PATIENT
  Age: 22 Year
  Sex: Female

DRUGS (9)
  1. DICLOFENAC [Concomitant]
     Active Substance: DICLOFENAC
     Indication: PRODUCT USED FOR UNKNOWN INDICATION
     Dosage: 50 MG, TWO TIMES A DAY
     Route: 065
  2. ETHINYLESTRADIOL W/NORELGESTROMIN [Concomitant]
     Indication: PRODUCT USED FOR UNKNOWN INDICATION
     Dosage: UNK
     Route: 065
  3. METAXALONE. [Suspect]
     Active Substance: METAXALONE
     Indication: PRODUCT USED FOR UNKNOWN INDICATION
     Dosage: UNK
     Route: 065
  4. MEDROXYPROGESTERONE [Concomitant]
     Active Substance: MEDROXYPROGESTERONE
     Indication: PRODUCT USED FOR UNKNOWN INDICATION
     Dosage: 150 MG/ML, ONE INJECTION EVERY THREE MONTHS
     Route: 065
  5. HYDROCODONE W/ACETAMINOPHEN [Concomitant]
     Active Substance: ACETAMINOPHEN\HYDROCODONE BITARTRATE
     Indication: PRODUCT USED FOR UNKNOWN INDICATION
     Dosage: 5/325 MG , AS NECESSARY
     Route: 065
  6. CLONAZEPAM. [Concomitant]
     Active Substance: CLONAZEPAM
     Indication: PRODUCT USED FOR UNKNOWN INDICATION
     Dosage: 0.5 MG, FOUR TIMES/DAY
     Route: 065
  7. AMITRIPTYLINE [Concomitant]
     Active Substance: AMITRIPTYLINE
     Indication: PRODUCT USED FOR UNKNOWN INDICATION
     Dosage: 25 MG, DAILY
     Route: 065
  8. PAROXETINE [Suspect]
     Active Substance: PAROXETINE\PAROXETINE HYDROCHLORIDE
     Indication: PRODUCT USED FOR UNKNOWN INDICATION
     Dosage: UNK
     Route: 065
  9. DIPHENHYDRAMINE [Concomitant]
     Active Substance: DIPHENHYDRAMINE
     Indication: PRODUCT USED FOR UNKNOWN INDICATION
     Dosage: UNK
     Route: 065

REACTIONS (24)
  - Serotonin syndrome [Unknown]
  - Seizure [Unknown]
  - Depressed level of consciousness [Unknown]
  - Muscle rigidity [Recovered/Resolved]
  - Mydriasis [Unknown]
  - Troponin I increased [Unknown]
  - Mental status changes [Unknown]
  - Malaise [Unknown]
  - Clonus [Unknown]
  - Flushing [Unknown]
  - Mucous membrane disorder [Unknown]
  - Sinus tachycardia [Unknown]
  - Analgesic drug level increased [Unknown]
  - Blood thyroid stimulating hormone decreased [Unknown]
  - Hyperreflexia [Unknown]
  - Blood potassium increased [Unknown]
  - Blood pressure abnormal [Recovering/Resolving]
  - Overdose [Unknown]
  - Hyperthermia [Unknown]
  - Hyperhidrosis [Unknown]
  - Blood creatine phosphokinase increased [Unknown]
  - Thyroxine increased [Unknown]
  - Heart rate abnormal [Recovering/Resolving]
  - Supraventricular tachycardia [Unknown]
